FAERS Safety Report 8268700-3 (Version None)
Quarter: 2012Q1

REPORT INFORMATION
  Report Type: 
  Country: None (occurrence: None)
  Receive Date: 20120327
  Receipt Date: 20100318
  Transmission Date: 20120608
  Serious: Yes (Other)
  Sender: FDA-Public Use
  Company Number: PHEH2010US00775

PATIENT
  Age: 59 Year
  Sex: Female
  Weight: 91.1 kg

DRUGS (6)
  1. AMLODIPINE BESYLATE [Concomitant]
  2. RAMIPRIL [Concomitant]
  3. GLEEVEC [Suspect]
     Indication: CHRONIC MYELOID LEUKAEMIA
     Dosage: 400 MG, QD, ORAL, 600 MG, QD, ORAL, 400 MG, QD, ORAL, 300 MG, QD, ORAL
     Route: 048
     Dates: start: 20100205
  4. GLEEVEC [Suspect]
     Indication: CHRONIC MYELOID LEUKAEMIA
     Dosage: 400 MG, QD, ORAL, 600 MG, QD, ORAL, 400 MG, QD, ORAL, 300 MG, QD, ORAL
     Route: 048
     Dates: start: 20100310
  5. GLEEVEC [Suspect]
     Indication: CHRONIC MYELOID LEUKAEMIA
     Dosage: 400 MG, QD, ORAL, 600 MG, QD, ORAL, 400 MG, QD, ORAL, 300 MG, QD, ORAL
     Route: 048
     Dates: start: 20091113
  6. GLEEVEC [Suspect]
     Indication: CHRONIC MYELOID LEUKAEMIA
     Dosage: 400 MG, QD, ORAL, 600 MG, QD, ORAL, 400 MG, QD, ORAL, 300 MG, QD, ORAL
     Route: 048
     Dates: start: 20091118, end: 20091230

REACTIONS (4)
  - PANCYTOPENIA [None]
  - ANAEMIA [None]
  - PLATELET COUNT INCREASED [None]
  - NEUTROPENIA [None]
